FAERS Safety Report 9053528 (Version 1)
Quarter: 2013Q1

REPORT INFORMATION
  Report Type: Spontaneous
  Country: AR (occurrence: AR)
  Receive Date: 20130208
  Receipt Date: 20130208
  Transmission Date: 20140127
  Serious: Yes (Other)
  Sender: FDA-Public Use
  Company Number: PHHY2013AR011376

PATIENT
  Sex: Female

DRUGS (1)
  1. EXFORGE [Suspect]
     Indication: BLOOD PRESSURE
     Dosage: 1 DF (VALSA 160 MG /AMLO 10 MG) DAILY
     Route: 048

REACTIONS (5)
  - Asthma [Recovering/Resolving]
  - Bronchitis [Recovering/Resolving]
  - Chronic obstructive pulmonary disease [Recovering/Resolving]
  - Concomitant disease aggravated [Recovering/Resolving]
  - Dyspnoea [Recovering/Resolving]
